FAERS Safety Report 6876108-8 (Version None)
Quarter: 2010Q3

REPORT INFORMATION
  Report Type: 
  Country: None (occurrence: None)
  Receive Date: 20100727
  Receipt Date: 20100720
  Transmission Date: 20110219
  Serious: Yes (Death)
  Sender: FDA-Public Use
  Company Number: US-CELGENEUS-163-21880-10071754

PATIENT
  Sex: Male

DRUGS (3)
  1. REVLIMID [Suspect]
     Indication: MYELODYSPLASTIC SYNDROME
     Route: 048
     Dates: start: 20100401
  2. REVLIMID [Suspect]
     Route: 048
     Dates: start: 20091001, end: 20100401
  3. REVLIMID [Suspect]
     Route: 048
     Dates: start: 20080801, end: 20090901

REACTIONS (1)
  - DISEASE PROGRESSION [None]
